FAERS Safety Report 15062087 (Version 1)
Quarter: 2018Q2

REPORT INFORMATION
  Report Type: Report from Study
  Country: US (occurrence: US)
  Receive Date: 20180625
  Receipt Date: 20180625
  Transmission Date: 20180711
  Serious: Yes (Other)
  Sender: FDA-Public Use
  Company Number: US-CANTON LABORATORIES, LLC-2049911

PATIENT
  Age: 50 Year
  Sex: Female

DRUGS (3)
  1. NAPROSYN [Suspect]
     Active Substance: NAPROXEN
     Indication: PAIN
     Route: 065
  2. BACTRIM [Suspect]
     Active Substance: SULFAMETHOXAZOLE\TRIMETHOPRIM
     Route: 065
  3. LASIX [Suspect]
     Active Substance: FUROSEMIDE
     Route: 065

REACTIONS (1)
  - Pseudoporphyria [Unknown]
